FAERS Safety Report 4751714-5 (Version None)
Quarter: 2005Q3

REPORT INFORMATION
  Report Type: 
  Country: None (occurrence: None)
  Receive Date: 20050822
  Receipt Date: 20050822
  Transmission Date: 20060218
  Serious: Yes (Death)
  Sender: FDA-Public Use
  Company Number: None

PATIENT
  Age: 67 Year
  Sex: Female
  Weight: 81.6475 kg

DRUGS (1)
  1. PLAVIX [Suspect]
     Indication: VASCULAR OCCLUSION
     Dosage: 1 TABLET DAILEY
     Dates: start: 19991006, end: 20000127

REACTIONS (1)
  - CEREBRAL HAEMORRHAGE [None]
